FAERS Safety Report 9665965 (Version 1)
Quarter: 2013Q4

REPORT INFORMATION
  Report Type: Report from Study
  Country: AU (occurrence: AU)
  Receive Date: 20131104
  Receipt Date: 20131104
  Transmission Date: 20140711
  Serious: Yes (Life-Threatening, Hospitalization, Other)
  Sender: FDA-Public Use
  Company Number: AU-ASTRAZENECA-2013SE80486

PATIENT
  Age: 0 Day
  Sex: Male
  Weight: 3.8 kg

DRUGS (10)
  1. SEROQUEL XR [Suspect]
     Indication: PSYCHOTIC DISORDER
     Dosage: INITIATED AT 4/40 WEEKS OF PREGNANCY
     Route: 064
  2. ELEVIT [Concomitant]
     Indication: SUPPLEMENTATION THERAPY
     Dosage: INITIATED AT FIRST TRIMESTER AND STOPPED AT DELIVERY
     Route: 064
  3. FOLIC ACID [Concomitant]
     Indication: SUPPLEMENTATION THERAPY
     Dosage: INITIATED AT 4/40 WEEKS AND STOPPED AT DELIVERY
     Route: 064
  4. ARIPIPRAZOLE [Concomitant]
     Indication: ANTIPSYCHOTIC DRUG LEVEL
     Dosage: INITIATED AT PRE-PREGNANCY AND STOPPED AT 4/40 WEEKS
     Route: 064
  5. VENLAFAXINE [Concomitant]
     Indication: ANTIDEPRESSANT THERAPY
     Dosage: INITIATED PRE-PREGNANCY AND STOPPED AT 4/40 WEEKS
     Route: 064
  6. LITHIUM [Concomitant]
     Indication: MOOD ALTERED
     Dosage: INITIATED PRE-PREGNANCY AND STOPPED AT 4/40 WEEKS
     Route: 064
  7. LAMOTRIGENE [Concomitant]
     Indication: MOOD ALTERED
     Dosage: INITIATED AT PRE-PREGNANCY AND STOPPED AT 4/40 WEEKS
     Route: 064
  8. SERTRALINE [Concomitant]
     Indication: ANTIDEPRESSANT THERAPY
     Dosage: INITIATED AT 4/40 WEEKS
     Route: 064
  9. PRAMIN [Concomitant]
     Indication: ANTIEMETIC SUPPORTIVE CARE
     Dosage: INITIATED FROM 9/40 WEEKS AND STOPPED AT DELIVERY
     Route: 064
  10. AMOXYCILLIN [Concomitant]
     Indication: UPPER RESPIRATORY TRACT INFECTION
     Dosage: INITIATED AT 36/40 WEEKS AND STOPPED AT 36/40 WEEKS
     Route: 064

REACTIONS (1)
  - Respiratory distress [Recovered/Resolved]
